FAERS Safety Report 10960389 (Version 2)
Quarter: 2015Q2

REPORT INFORMATION
  Report Type: Report from Study
  Country: US (occurrence: US)
  Receive Date: 20150327
  Receipt Date: 20150622
  Transmission Date: 20150821
  Serious: Yes (Other)
  Sender: FDA-Public Use
  Company Number: US-SA-2015SA024458

PATIENT
  Age: 56 Year
  Sex: Female

DRUGS (1)
  1. AUBAGIO [Suspect]
     Active Substance: TERIFLUNOMIDE
     Indication: MULTIPLE SCLEROSIS
     Route: 048
     Dates: start: 20150219, end: 20150419

REACTIONS (12)
  - Depression [Unknown]
  - Nausea [Unknown]
  - Pollakiuria [Unknown]
  - Incontinence [Unknown]
  - Heart rate irregular [Recovered/Resolved]
  - Asthenia [Unknown]
  - Dizziness [Recovering/Resolving]
  - Vision blurred [Unknown]
  - Urinary tract infection [Unknown]
  - Vertigo [Unknown]
  - Unevaluable event [Unknown]
  - Crying [Unknown]

NARRATIVE: CASE EVENT DATE: 2015
